APPROVED DRUG PRODUCT: ACETAMINOPHEN
Active Ingredient: ACETAMINOPHEN
Strength: 650MG
Dosage Form/Route: TABLET, EXTENDED RELEASE;ORAL
Application: A207229 | Product #001
Applicant: AUROBINDO PHARMA LTD
Approved: Nov 9, 2016 | RLD: No | RS: No | Type: OTC